FAERS Safety Report 7378953-1 (Version None)
Quarter: 2011Q1

REPORT INFORMATION
  Report Type: 
  Country: None (occurrence: None)
  Receive Date: 20110328
  Receipt Date: 20110316
  Transmission Date: 20110831
  Serious: Yes (Other)
  Sender: FDA-Public Use
  Company Number: GXKR2010US10127

PATIENT
  Age: 67 Year
  Sex: Male

DRUGS (9)
  1. PREDNISONE [Suspect]
     Dosage: 10 MG/DAY
     Route: 065
  2. MYCOPHENOLATE MOFETIL [Suspect]
     Dosage: 1000 MG/DAY
     Route: 065
  3. POSACONAZOLE [Suspect]
     Indication: IMMUNOSUPPRESSION
  4. PREDNISONE [Suspect]
     Indication: IMMUNOSUPPRESSION
     Dosage: 80 MG/DAY
     Route: 065
  5. PREDNISONE [Suspect]
     Dosage: 5 MG/DAY
     Route: 065
  6. ACYCLOVIR [Suspect]
     Indication: IMMUNOSUPPRESSION
  7. MYCOPHENOLATE MOFETIL [Suspect]
     Indication: IMMUNOSUPPRESSION
     Dosage: 2000 MG/DAY
     Route: 065
  8. TACROLIMUS [Suspect]
     Dosage: 0.5 MG/DAY
  9. TACROLIMUS [Suspect]
     Indication: IMMUNOSUPPRESSION
     Dosage: 1.5 MG/DAY
     Route: 065

REACTIONS (2)
  - PANCYTOPENIA [None]
  - NEUTROPHIL PELGER-HUET ANOMALY PRESENT [None]
